FAERS Safety Report 5957408-2 (Version None)
Quarter: 2008Q4

REPORT INFORMATION
  Report Type: 
  Country: None (occurrence: None)
  Receive Date: 20081118
  Receipt Date: 20081117
  Transmission Date: 20090506
  Serious: Yes (Disabling, Other)
  Sender: FDA-Public Use
  Company Number: AU-MERCK-0805AUS00154

PATIENT
  Age: 68 Year
  Sex: Male

DRUGS (6)
  1. ZOCOR [Suspect]
     Indication: LIPIDS INCREASED
     Route: 048
     Dates: start: 20020101
  2. ZOCOR [Suspect]
     Route: 048
     Dates: start: 20080101, end: 20080630
  3. HYDROCORTISONE [Concomitant]
     Route: 061
  4. DICLOFENAC SODIUM [Concomitant]
     Route: 048
  5. TAMSULOSIN HYDROCHLORIDE [Concomitant]
     Route: 048
  6. ALLOPURINOL [Concomitant]
     Route: 048

REACTIONS (2)
  - TENDON DISORDER [None]
  - TENDON RUPTURE [None]
